FAERS Safety Report 7406734 (Version 4)
Quarter: 2012Q4

REPORT INFORMATION
  Report Type: 
  Country: JP (occurrence: JP)
  Receive Date: 20100602
  Receipt Date: 20120829
  Transmission Date: 20130627
  Serious: Yes (Life-Threatening)
  Sender: FDA-Public Use
  Company Number: JP-SANOFI-AVENTIS-2010SA030577

PATIENT
  Age: 0 Day
  Sex: Male
  Weight: 2.57 kg

DRUGS (8)
  1. ZOLPIDEM TARTRATE [Suspect]
     Indication: DRUG EXPOSURE IN UTERO
     Route: 064
     Dates: end: 20100211
  2. ETHYL ALCOHOL [Suspect]
     Indication: DRUG EXPOSURE DURING PREGNANCY
     Route: 064
     Dates: end: 20100811
  3. SEDIOTON [Concomitant]
     Route: 064
     Dates: end: 20100211
  4. ETIZOLAM [Concomitant]
     Route: 064
     Dates: end: 20100211
  5. HALCION [Concomitant]
     Route: 064
     Dates: end: 20100211
  6. BROTIZOLAM [Concomitant]
     Route: 064
  7. SERTRALINE [Concomitant]
     Route: 064
  8. PERPHENAZINE [Concomitant]
     Route: 064

REACTIONS (3)
  - Neonatal asphyxia [Recovered/Resolved]
  - Foetal exposure during pregnancy [Unknown]
  - Drug level increased [Recovered/Resolved]
